FAERS Safety Report 21401138 (Version 1)
Quarter: 2022Q4

REPORT INFORMATION
  Report Type: Report from Study
  Country: US (occurrence: US)
  Receive Date: 20221003
  Receipt Date: 20221003
  Transmission Date: 20230113
  Serious: No
  Sender: FDA-Public Use
  Company Number: US-ABBVIE-22K-163-4480488-00

PATIENT
  Sex: Female

DRUGS (2)
  1. HUMIRA [Suspect]
     Active Substance: ADALIMUMAB
     Indication: Rheumatoid arthritis
     Dosage: CF
     Route: 058
     Dates: start: 20220610
  2. Moderna [Concomitant]
     Indication: COVID-19 immunisation
     Dosage: TIME INTERVAL: 1 TOTAL
     Route: 030

REACTIONS (11)
  - Pruritus [Not Recovered/Not Resolved]
  - Fatigue [Unknown]
  - Injection site erythema [Not Recovered/Not Resolved]
  - Papule [Not Recovered/Not Resolved]
  - Injection site papule [Not Recovered/Not Resolved]
  - Injection site pruritus [Not Recovered/Not Resolved]
  - Injection site bruising [Unknown]
  - Injection site erythema [Unknown]
  - Injection site pruritus [Unknown]
  - Injection site swelling [Unknown]
  - Injection site warmth [Unknown]

NARRATIVE: CASE EVENT DATE: 20220101
